FAERS Safety Report 22884200 (Version 2)
Quarter: 2023Q4

REPORT INFORMATION
  Report Type: Report from Study
  Country: US (occurrence: US)
  Receive Date: 20230830
  Receipt Date: 20231017
  Transmission Date: 20240109
  Serious: Yes (Hospitalization)
  Sender: FDA-Public Use
  Company Number: US-GENMAB-2022-00827

PATIENT
  Age: 74 Year
  Sex: Female
  Weight: 65 kg

DRUGS (55)
  1. EPCORITAMAB [Suspect]
     Active Substance: EPCORITAMAB
     Indication: Follicular lymphoma stage IV
     Dosage: C1D1
     Route: 058
     Dates: start: 20210701, end: 20210701
  2. EPCORITAMAB [Suspect]
     Active Substance: EPCORITAMAB
     Dosage: C1D8
     Route: 058
     Dates: start: 20210715, end: 20210715
  3. EPCORITAMAB [Suspect]
     Active Substance: EPCORITAMAB
     Dosage: C1D22-C3D22
     Route: 058
     Dates: start: 20210721, end: 20210915
  4. EPCORITAMAB [Suspect]
     Active Substance: EPCORITAMAB
     Dosage: C4D1-C5D1
     Route: 058
     Dates: start: 20210929, end: 20211020
  5. EPCORITAMAB [Suspect]
     Active Substance: EPCORITAMAB
     Dosage: RP1D1
     Route: 058
     Dates: start: 20211229, end: 20211229
  6. EPCORITAMAB [Suspect]
     Active Substance: EPCORITAMAB
     Dosage: RP1D8
     Route: 058
     Dates: start: 20220106, end: 20220106
  7. EPCORITAMAB [Suspect]
     Active Substance: EPCORITAMAB
     Dosage: RP1D15-RP1D22
     Route: 058
     Dates: start: 20220112, end: 20220126
  8. EPCORITAMAB [Suspect]
     Active Substance: EPCORITAMAB
     Dosage: C6D1-C9D15
     Route: 058
     Dates: start: 20220202, end: 20220525
  9. EPCORITAMAB [Suspect]
     Active Substance: EPCORITAMAB
     Dosage: C10D1-C11D1
     Route: 058
     Dates: start: 20220608, end: 20220706
  10. EPCORITAMAB [Suspect]
     Active Substance: EPCORITAMAB
     Dosage: C12D1-C15D1
     Route: 058
     Dates: start: 20220816, end: 20221109
  11. RITUXIMAB [Suspect]
     Active Substance: RITUXIMAB
     Indication: Follicular lymphoma stage IV
     Dosage: C1D1
     Route: 042
     Dates: start: 20210701, end: 20210702
  12. RITUXIMAB [Suspect]
     Active Substance: RITUXIMAB
     Dosage: C1D22
     Route: 042
     Dates: start: 20210721, end: 20210721
  13. RITUXIMAB [Suspect]
     Active Substance: RITUXIMAB
     Dosage: C2D1 - C5D1
     Route: 042
     Dates: start: 20210728, end: 20211020
  14. LENALIDOMIDE [Suspect]
     Active Substance: LENALIDOMIDE
     Indication: Follicular lymphoma stage IV
     Dosage: C1
     Route: 048
     Dates: start: 20210701, end: 20210711
  15. LENALIDOMIDE [Suspect]
     Active Substance: LENALIDOMIDE
     Dosage: C1
     Route: 048
     Dates: start: 20210715, end: 20210717
  16. LENALIDOMIDE [Suspect]
     Active Substance: LENALIDOMIDE
     Dosage: C1
     Route: 048
     Dates: start: 20210719, end: 20210721
  17. LENALIDOMIDE [Suspect]
     Active Substance: LENALIDOMIDE
     Dosage: C2
     Route: 048
     Dates: start: 20210729, end: 20210818
  18. LENALIDOMIDE [Suspect]
     Active Substance: LENALIDOMIDE
     Dosage: C3
     Route: 048
     Dates: start: 20210825, end: 20210914
  19. LENALIDOMIDE [Suspect]
     Active Substance: LENALIDOMIDE
     Dosage: C4
     Route: 048
     Dates: start: 20210922, end: 20210929
  20. LENALIDOMIDE [Suspect]
     Active Substance: LENALIDOMIDE
     Dosage: C4
     Route: 048
     Dates: start: 20211003, end: 20211012
  21. LENALIDOMIDE [Suspect]
     Active Substance: LENALIDOMIDE
     Dosage: C5
     Route: 048
     Dates: start: 20211020, end: 20211026
  22. LENALIDOMIDE [Suspect]
     Active Substance: LENALIDOMIDE
     Dosage: RE-PRIMING 1
     Route: 048
     Dates: start: 20211229, end: 20211229
  23. LENALIDOMIDE [Suspect]
     Active Substance: LENALIDOMIDE
     Dosage: RE-PRIMING 1
     Route: 048
     Dates: start: 20211230, end: 20220118
  24. LENALIDOMIDE [Suspect]
     Active Substance: LENALIDOMIDE
     Dosage: C6
     Route: 048
     Dates: start: 20220202, end: 20220207
  25. LENALIDOMIDE [Suspect]
     Active Substance: LENALIDOMIDE
     Dosage: C7
     Route: 048
     Dates: start: 20220322, end: 20220412
  26. LENALIDOMIDE [Suspect]
     Active Substance: LENALIDOMIDE
     Dosage: C8
     Route: 048
     Dates: start: 20220413, end: 20220503
  27. LENALIDOMIDE [Suspect]
     Active Substance: LENALIDOMIDE
     Dosage: C9
     Route: 048
     Dates: start: 20220510, end: 20220512
  28. CETIRIZINE [Concomitant]
     Active Substance: CETIRIZINE HYDROCHLORIDE
     Indication: Premedication
     Dosage: 50 MILLIGRAM, SINGLE
     Route: 048
     Dates: start: 20220706, end: 20220706
  29. CETIRIZINE [Concomitant]
     Active Substance: CETIRIZINE HYDROCHLORIDE
     Dosage: 10 MILLIGRAM, SINGLE
     Route: 048
     Dates: start: 20220816, end: 20220816
  30. CETIRIZINE [Concomitant]
     Active Substance: CETIRIZINE HYDROCHLORIDE
     Dosage: 10 MILLIGRAM, SINGLE
     Route: 048
     Dates: start: 20220914, end: 20220914
  31. PREDNISONE [Concomitant]
     Active Substance: PREDNISONE
     Indication: Prophylaxis
     Dosage: 100 MILLIGRAM, QD
     Route: 048
     Dates: start: 20220706, end: 20220706
  32. PREDNISONE [Concomitant]
     Active Substance: PREDNISONE
     Dosage: 100 MILLIGRAM, QD
     Route: 048
     Dates: start: 20220816, end: 20220816
  33. ACETAMINOPHEN [Concomitant]
     Active Substance: ACETAMINOPHEN
     Indication: Prophylaxis
     Dosage: 650 MILLIGRAM, EVERY 4 HOURS PRN
     Route: 048
     Dates: start: 20210622
  34. ACYCLOVIR [Concomitant]
     Active Substance: ACYCLOVIR
     Indication: Prophylaxis
     Dosage: 400 MILLIGRAM, BID
     Route: 048
     Dates: start: 20210602
  35. CALCIUM;MINERALS NOS;VITAMIN D NOS [Concomitant]
     Indication: Prophylaxis
     Dosage: 1 TABLET, QD
     Route: 048
     Dates: start: 20180319
  36. CARVEDILOL [Concomitant]
     Active Substance: CARVEDILOL
     Dosage: 25 MILLIGRAM, BID
     Route: 048
     Dates: start: 20211116, end: 20220804
  37. CARVEDILOL [Concomitant]
     Active Substance: CARVEDILOL
     Dosage: 12.5 MILLIGRAM, BID
     Route: 048
     Dates: start: 20220806, end: 20220907
  38. CARVEDILOL [Concomitant]
     Active Substance: CARVEDILOL
     Dosage: 6.25 MILLIGRAM, BID
     Route: 048
     Dates: start: 20220805, end: 20220805
  39. CARVEDILOL [Concomitant]
     Active Substance: CARVEDILOL
     Dosage: 25 MILLIGRAM, BID
     Route: 048
     Dates: start: 20220907, end: 20230106
  40. DULOXETINE [Concomitant]
     Active Substance: DULOXETINE
     Dosage: 30 MILLIGRAM, QD
     Route: 048
     Dates: start: 20210518
  41. FERROUS SULFATE [Concomitant]
     Active Substance: FERROUS SULFATE
     Indication: Prophylaxis
     Dosage: 325 MILLIGRAM, QD
     Route: 048
     Dates: start: 20210510
  42. GLIPIZIDE [Concomitant]
     Active Substance: GLIPIZIDE
     Dosage: 10 MILLIGRAM, QD
     Route: 048
     Dates: start: 20210128
  43. LISINOPRIL [Concomitant]
     Active Substance: LISINOPRIL
     Dosage: 10 MILLIGRAM, QD
     Route: 048
     Dates: start: 20210924
  44. LOPERAMIDE [Concomitant]
     Active Substance: LOPERAMIDE
     Dosage: FREQUENCY : 4 TIMES DAILY PRN
     Route: 048
     Dates: start: 20210522
  45. LORAZEPAM [Concomitant]
     Active Substance: LORAZEPAM
     Indication: Prophylaxis
     Dosage: 0.5 MILLIGRAM, EVERY 4 HOURS PRN
     Route: 048
     Dates: start: 20210622
  46. METFORMIN [Concomitant]
     Active Substance: METFORMIN HYDROCHLORIDE
     Dosage: 1000 MILLIGRAM, BID
     Route: 048
     Dates: start: 20190520
  47. OMEPRAZOLE [Concomitant]
     Active Substance: OMEPRAZOLE
     Dosage: 20 MILLIGRAM, QD
     Route: 048
     Dates: start: 20220221
  48. ALBUTEROL [Concomitant]
     Active Substance: ALBUTEROL
     Indication: Pneumonia
     Dosage: 2  PUFFS, Q4H
     Dates: start: 20220627
  49. CODEINE\GUAIFENESIN [Concomitant]
     Active Substance: CODEINE\GUAIFENESIN
     Indication: Pneumonia
     Dosage: (100MG/5ML) 10 MILLILITER, Q6H
     Route: 048
     Dates: start: 20220627, end: 20220907
  50. ACETAMINOPHEN\HYDROCODONE [Concomitant]
     Active Substance: ACETAMINOPHEN\HYDROCODONE
     Dosage: 1 DOSAGE FORM, Q6H
     Route: 048
     Dates: start: 20220320, end: 20220705
  51. PREGABALIN [Concomitant]
     Active Substance: PREGABALIN
     Dosage: 150 MILLIGRAM, BID
     Route: 048
     Dates: start: 20220623, end: 20220930
  52. PREGABALIN [Concomitant]
     Active Substance: PREGABALIN
     Dosage: 75 MILLIGRAM, BID
     Route: 048
     Dates: start: 20220930, end: 20221020
  53. GAMMAGARD [Concomitant]
     Active Substance: HUMAN IMMUNOGLOBULIN G
     Indication: Infection
     Dosage: 25 GRAM, SINGLE
     Route: 042
     Dates: start: 20220803, end: 20220803
  54. GAMMAGARD [Concomitant]
     Active Substance: HUMAN IMMUNOGLOBULIN G
     Dosage: 35 GRAM, SINGLE
     Route: 042
     Dates: start: 20220928, end: 20220928
  55. GAMMAGARD [Concomitant]
     Active Substance: HUMAN IMMUNOGLOBULIN G
     Dosage: 30 GRAM, SINGLE
     Route: 042
     Dates: start: 20220831, end: 20220831

REACTIONS (6)
  - Pneumonia bacterial [Recovered/Resolved]
  - Blood creatinine increased [Recovered/Resolved]
  - Viral upper respiratory tract infection [Recovered/Resolved]
  - Diarrhoea [Recovered/Resolved]
  - Fatigue [Recovered/Resolved]
  - Blood creatinine increased [Recovered/Resolved]

NARRATIVE: CASE EVENT DATE: 20220801
